FAERS Safety Report 18979044 (Version 1)
Quarter: 2021Q1

REPORT INFORMATION
  Report Type: Spontaneous
  Country: US (occurrence: US)
  Receive Date: 20210308
  Receipt Date: 20210308
  Transmission Date: 20210420
  Serious: Yes (Hospitalization, Other)
  Sender: FDA-Public Use
  Company Number: US-AUROBINDO-AUR-APL-2019-049999

PATIENT
  Age: 77 Year
  Sex: Female
  Weight: 59 kg

DRUGS (25)
  1. ATROVENT [Concomitant]
     Active Substance: IPRATROPIUM BROMIDE
     Dosage: UNK
     Route: 065
  2. POTASSIUM CHLORIDE. [Concomitant]
     Active Substance: POTASSIUM CHLORIDE
     Indication: PRODUCT USED FOR UNKNOWN INDICATION
     Dosage: UNK
     Route: 065
  3. CARTIA XT [Concomitant]
     Active Substance: DILTIAZEM HYDROCHLORIDE
     Indication: PRODUCT USED FOR UNKNOWN INDICATION
     Dosage: 120 MILLIGRAM
     Route: 065
  4. ZEVALIN [Suspect]
     Active Substance: IBRITUMOMAB TIUXETAN
     Dosage: 27.5 MILLICURIE, ONCE A DAY
     Route: 042
     Dates: start: 20050920, end: 20050920
  5. DIGITEK [Concomitant]
     Active Substance: DIGOXIN
     Indication: PRODUCT USED FOR UNKNOWN INDICATION
     Dosage: UNK
     Route: 065
  6. FLOVENT [Concomitant]
     Active Substance: FLUTICASONE PROPIONATE
     Indication: PRODUCT USED FOR UNKNOWN INDICATION
     Dosage: UNK
     Route: 065
  7. AMARYL [Concomitant]
     Active Substance: GLIMEPIRIDE
     Indication: PRODUCT USED FOR UNKNOWN INDICATION
     Dosage: 2 MILLIGRAM
     Route: 065
  8. AMARYL [Concomitant]
     Active Substance: GLIMEPIRIDE
     Dosage: 1 MILLIGRAM
     Route: 065
  9. LASIX [Concomitant]
     Active Substance: FUROSEMIDE
     Indication: PRODUCT USED FOR UNKNOWN INDICATION
     Dosage: 40 MILLIGRAM
     Route: 065
  10. CITRUCEL [Concomitant]
     Active Substance: METHYLCELLULOSE (4000 MPA.S)
     Indication: PRODUCT USED FOR UNKNOWN INDICATION
     Dosage: UNK
     Route: 065
  11. RITUXIMAB. [Suspect]
     Active Substance: RITUXIMAB
     Dosage: 250 MILLIGRAM/SQ. METER
     Route: 042
     Dates: start: 20050920
  12. INDIUM (111 IN) [Suspect]
     Active Substance: INDIUM IN-111
     Indication: NON-HODGKIN^S LYMPHOMA
     Dosage: UNK UNK, ONCE A DAY
     Route: 042
     Dates: start: 200509, end: 200509
  13. ATROVENT [Concomitant]
     Active Substance: IPRATROPIUM BROMIDE
     Indication: PRODUCT USED FOR UNKNOWN INDICATION
     Dosage: UNK
     Route: 065
  14. ZYRTEC [Concomitant]
     Active Substance: CETIRIZINE HYDROCHLORIDE
     Indication: PRODUCT USED FOR UNKNOWN INDICATION
     Dosage: 10 MILLIGRAM
     Route: 065
  15. NEUPOGEN [Concomitant]
     Active Substance: FILGRASTIM
     Indication: PRODUCT USED FOR UNKNOWN INDICATION
     Dosage: UNK
     Route: 065
  16. YTTRIUM. [Suspect]
     Active Substance: YTTRIUM
     Indication: NON-HODGKIN^S LYMPHOMA
     Dosage: UNK UNK, ONCE A DAY
     Route: 042
     Dates: start: 20050920, end: 20050920
  17. RITUXIMAB. [Suspect]
     Active Substance: RITUXIMAB
     Indication: PRODUCT USED FOR UNKNOWN INDICATION
     Dosage: 250 MILLIGRAM/SQ. METER
     Route: 042
     Dates: start: 200509, end: 200509
  18. LASIX [Concomitant]
     Active Substance: FUROSEMIDE
     Dosage: 60 MILLIGRAM
     Route: 065
  19. PREVACID [Concomitant]
     Active Substance: LANSOPRAZOLE
     Indication: PRODUCT USED FOR UNKNOWN INDICATION
     Dosage: 30 MILLIGRAM
     Route: 065
  20. LIPITOR [Concomitant]
     Active Substance: ATORVASTATIN CALCIUM
     Indication: PRODUCT USED FOR UNKNOWN INDICATION
     Dosage: 40 MILLIGRAM
     Route: 065
  21. MIRALAX [Concomitant]
     Active Substance: POLYETHYLENE GLYCOL 3350
     Indication: PRODUCT USED FOR UNKNOWN INDICATION
     Dosage: UNK
     Route: 065
  22. PROCRIT [Concomitant]
     Active Substance: ERYTHROPOIETIN
     Indication: PRODUCT USED FOR UNKNOWN INDICATION
     Dosage: UNK
     Route: 065
  23. ZEVALIN [Suspect]
     Active Substance: IBRITUMOMAB TIUXETAN
     Indication: NON-HODGKIN^S LYMPHOMA
     Dosage: UNK UNK, ONCE A DAY
     Route: 042
     Dates: start: 200509, end: 200509
  24. WARFARIN [Concomitant]
     Active Substance: WARFARIN
     Indication: PRODUCT USED FOR UNKNOWN INDICATION
     Dosage: UNK
     Route: 065
  25. SOTALOL. [Concomitant]
     Active Substance: SOTALOL
     Indication: PRODUCT USED FOR UNKNOWN INDICATION
     Dosage: 80 MILLIGRAM
     Route: 065

REACTIONS (8)
  - Urosepsis [Unknown]
  - Depression [Recovered/Resolved with Sequelae]
  - Abdominal mass [Unknown]
  - Cholelithiasis [Unknown]
  - Pancytopenia [Unknown]
  - Pyrexia [Unknown]
  - Pneumonia [Recovered/Resolved]
  - Haematoma infection [Recovered/Resolved with Sequelae]

NARRATIVE: CASE EVENT DATE: 200510
